FAERS Safety Report 11767075 (Version 2)
Quarter: 2015Q4

REPORT INFORMATION
  Report Type: Spontaneous
  Country: LV (occurrence: LV)
  Receive Date: 20151123
  Receipt Date: 20151214
  Transmission Date: 20160304
  Serious: Yes (Death, Hospitalization, Other)
  Sender: FDA-Public Use
  Company Number: LV-ASTELLAS-2015US043312

PATIENT
  Age: 59 Year
  Sex: Male

DRUGS (11)
  1. ADVAGRAF [Suspect]
     Active Substance: TACROLIMUS
     Route: 065
     Dates: start: 20150605
  2. PROCORALAN [Concomitant]
     Active Substance: IVABRADINE
     Indication: PRODUCT USED FOR UNKNOWN INDICATION
     Dosage: UNK UNK, UNKNOWN FREQ.
     Route: 065
  3. NORVASC [Concomitant]
     Active Substance: AMLODIPINE BESYLATE
     Indication: PRODUCT USED FOR UNKNOWN INDICATION
     Dosage: UNK UNK, UNKNOWN FREQ.
     Route: 065
  4. VALCYTE [Concomitant]
     Active Substance: VALGANCICLOVIR HYDROCHLORIDE
     Indication: PRODUCT USED FOR UNKNOWN INDICATION
     Dosage: UNK UNK, UNKNOWN FREQ.
     Route: 065
  5. ADVAGRAF [Suspect]
     Active Substance: TACROLIMUS
     Route: 048
     Dates: start: 20150901
  6. PRESTARIUM                         /00790701/ [Concomitant]
     Indication: PRODUCT USED FOR UNKNOWN INDICATION
     Dosage: UNK UNK, UNKNOWN FREQ.
     Route: 065
  7. ALLOPURINOL. [Concomitant]
     Active Substance: ALLOPURINOL
     Indication: PRODUCT USED FOR UNKNOWN INDICATION
     Dosage: UNK UNK, UNKNOWN FREQ.
     Route: 065
  8. ADVAGRAF [Suspect]
     Active Substance: TACROLIMUS
     Indication: IMMUNOSUPPRESSION
     Route: 065
     Dates: start: 20150601
  9. ADVAGRAF [Suspect]
     Active Substance: TACROLIMUS
     Route: 065
     Dates: start: 20150815
  10. CELLCEPT [Concomitant]
     Active Substance: MYCOPHENOLATE MOFETIL\MYCOPHENOLATE MOFETIL HYDROCHLORIDE
     Indication: IMMUNOSUPPRESSION
     Route: 065
     Dates: start: 20150601, end: 20151101
  11. PREDNISOLON                        /00016201/ [Concomitant]
     Active Substance: PREDNISOLONE
     Indication: IMMUNOSUPPRESSION
     Route: 065
     Dates: start: 20150601, end: 20151101

REACTIONS (7)
  - Thrombosis [Recovered/Resolved]
  - Cerebrovascular accident [Fatal]
  - Off label use [Unknown]
  - General physical health deterioration [Unknown]
  - Bronchopulmonary aspergillosis [Fatal]
  - Vision blurred [Unknown]
  - Nervous system disorder [Unknown]

NARRATIVE: CASE EVENT DATE: 2015
